FAERS Safety Report 5927271-4 (Version None)
Quarter: 2008Q4

REPORT INFORMATION
  Report Type: 
  Country: None (occurrence: None)
  Receive Date: 20081022
  Receipt Date: 20081013
  Transmission Date: 20090506
  Serious: Yes (Death, Hospitalization)
  Sender: FDA-Public Use
  Company Number: KR-MERCK-0810KOR00017

PATIENT
  Age: 86 Year
  Sex: Female
  Weight: 61 kg

DRUGS (2)
  1. COZAAR [Suspect]
     Indication: HYPERTENSION
     Route: 048
     Dates: start: 19930201
  2. AMINOPHYLLINE [Concomitant]
     Indication: ASTHMA
     Route: 048
     Dates: start: 19950301

REACTIONS (2)
  - FEMORAL NECK FRACTURE [None]
  - UPPER GASTROINTESTINAL HAEMORRHAGE [None]
